FAERS Safety Report 7953296-3 (Version None)
Quarter: 2011Q4

REPORT INFORMATION
  Report Type: 
  Country: None (occurrence: None)
  Receive Date: 20111202
  Receipt Date: 20111118
  Transmission Date: 20120403
  Serious: Yes (Hospitalization)
  Sender: FDA-Public Use
  Company Number: ES-MYLANLABS-2011S1024333

PATIENT
  Age: 5 Year
  Sex: Female

DRUGS (1)
  1. IBUPROFEN [Suspect]
     Route: 065

REACTIONS (8)
  - PHOTOPHOBIA [None]
  - DISTICHIASIS [None]
  - TOXIC EPIDERMAL NECROLYSIS [None]
  - IRIS ADHESIONS [None]
  - SKIN DISCOLOURATION [None]
  - BLINDNESS [None]
  - SKIN HYPERPIGMENTATION [None]
  - LACRIMATION INCREASED [None]
